FAERS Safety Report 19169922 (Version 1)
Quarter: 2021Q2

REPORT INFORMATION
  Report Type: Report from Study
  Country: US (occurrence: US)
  Receive Date: 20210422
  Receipt Date: 20210422
  Transmission Date: 20210717
  Serious: Yes (Life-Threatening, Hospitalization, Congenital Anomaly)
  Sender: FDA-Public Use
  Company Number: US-TEVA-2021-US-1902970

PATIENT

DRUGS (3)
  1. SERTRALINE [Suspect]
     Active Substance: SERTRALINE HYDROCHLORIDE
     Indication: PRODUCT USED FOR UNKNOWN INDICATION
     Route: 064
  2. OXYCODONE [Suspect]
     Active Substance: OXYCODONE
     Indication: PRODUCT USED FOR UNKNOWN INDICATION
     Route: 064
  3. RITUXIMAB. [Suspect]
     Active Substance: RITUXIMAB
     Indication: RHEUMATOID ARTHRITIS
     Route: 064

REACTIONS (13)
  - Neonatal respiratory acidosis [Unknown]
  - Congenital hair disorder [Unknown]
  - Micrognathia [Unknown]
  - Congenital nose malformation [Unknown]
  - Clinodactyly [Unknown]
  - Jaundice neonatal [Unknown]
  - Meconium aspiration syndrome [Unknown]
  - Thrombocytopenia neonatal [Recovered/Resolved]
  - Congenital oral malformation [Unknown]
  - Pulmonary hypertension [Recovered/Resolved]
  - Foetal exposure during pregnancy [Unknown]
  - Cyanosis [Unknown]
  - Hypotonia neonatal [Unknown]
